FAERS Safety Report 6454089-9 (Version None)
Quarter: 2009Q4

REPORT INFORMATION
  Report Type: 
  Country: None (occurrence: None)
  Receive Date: 20091124
  Receipt Date: 20091119
  Transmission Date: 20100525
  Serious: Yes (Life-Threatening)
  Sender: FDA-Public Use
  Company Number: CO-SANOFI-AVENTIS-2009SA003698

PATIENT
  Age: 74 Year
  Sex: Male

DRUGS (3)
  1. CLOPIDOGREL BISULFATE [Suspect]
     Indication: PROPHYLAXIS
     Route: 048
     Dates: start: 20090909
  2. CLOPIDOGREL BISULFATE [Suspect]
     Route: 048
     Dates: start: 20090909
  3. CLOPIDOGREL BISULFATE [Suspect]
     Route: 048
     Dates: start: 20090909

REACTIONS (2)
  - EPISTAXIS [None]
  - IN-STENT CORONARY ARTERY RESTENOSIS [None]
